FAERS Safety Report 4964859-1 (Version None)
Quarter: 2006Q1

REPORT INFORMATION
  Report Type: 
  Country: None (occurrence: None)
  Receive Date: 20060130
  Receipt Date: 20050926
  Transmission Date: 20060701
  Serious: Yes (Hospitalization)
  Sender: FDA-Public Use
  Company Number: 143249USA

PATIENT
  Age: 69 Year
  Sex: Female

DRUGS (1)
  1. COPAXONE [Suspect]
     Indication: MULTIPLE SCLEROSIS
     Dates: start: 19980101, end: 20050201

REACTIONS (2)
  - LOSS OF CONSCIOUSNESS [None]
  - MUSCLE SPASMS [None]
